FAERS Safety Report 6473419-5 (Version None)
Quarter: 2009Q4

REPORT INFORMATION
  Report Type: 
  Country: None (occurrence: None)
  Receive Date: 20091204
  Receipt Date: 20090601
  Transmission Date: 20100525
  Serious: Yes (Hospitalization)
  Sender: FDA-Public Use
  Company Number: US-ELI_LILLY_AND_COMPANY-US200810002028

PATIENT
  Sex: Female
  Weight: 99.773 kg

DRUGS (7)
  1. BYETTA [Suspect]
     Indication: TYPE 2 DIABETES MELLITUS
     Dosage: 5 UG, 2/D
     Route: 058
     Dates: start: 20050101, end: 20050101
  2. BYETTA [Suspect]
     Dosage: 10 UG, 2/D
     Route: 058
     Dates: start: 20050101
  3. METFORMIN HCL [Concomitant]
     Dosage: 500 UNK, 2/D
  4. DIOVAN HCT [Concomitant]
     Dosage: UNK, DAILY (1/D)
  5. ATENOLOL [Concomitant]
     Dosage: 100 MG, DAILY (1/D)
  6. SIMVASTATIN [Concomitant]
     Indication: PROPHYLAXIS
     Dosage: 20 MG, DAILY (1/D)
  7. ASPIRIN [Concomitant]
     Indication: PROPHYLAXIS
     Dosage: UNK, DAILY (1/D)

REACTIONS (3)
  - CHEST PAIN [None]
  - HYPOKALAEMIA [None]
  - PAIN IN JAW [None]
